FAERS Safety Report 7679791-2 (Version None)
Quarter: 2011Q3

REPORT INFORMATION
  Report Type: 
  Country: None (occurrence: None)
  Receive Date: 20110812
  Receipt Date: 20110609
  Transmission Date: 20111222
  Serious: No
  Sender: FDA-Public Use
  Company Number: US-BAYER-2011-050439

PATIENT
  Age: 31 Year
  Sex: Female

DRUGS (1)
  1. CIPROFLOXACIN [Suspect]
     Indication: KIDNEY INFECTION
     Dosage: 500 MG, BID
     Route: 048
     Dates: start: 20110416, end: 20110430

REACTIONS (3)
  - PAIN [None]
  - PAIN IN EXTREMITY [None]
  - CONTUSION [None]
